FAERS Safety Report 7331066-7 (Version None)
Quarter: 2011Q1

REPORT INFORMATION
  Report Type: 
  Country: None (occurrence: None)
  Receive Date: 20110228
  Receipt Date: 20110228
  Transmission Date: 20110831
  Serious: Yes (Death)
  Sender: FDA-Public Use
  Company Number: None

PATIENT
  Sex: Female
  Weight: 74.8435 kg

DRUGS (3)
  1. TYLENOL PM [Suspect]
     Indication: SLEEP DISORDER
     Dosage: 325 MG 2X/NIGHT TABLETS LONG TERM USE
  2. MOTRIN [Suspect]
     Indication: PAIN
     Dosage: 200MG 4X/DAY TABLETS LONG TERM USE
  3. BENADRYL [Suspect]
     Indication: HYPERSENSITIVITY
     Dosage: 25MG 6X/DAY TABLETS LONG TERM USE

REACTIONS (1)
  - HEADACHE [None]
